FAERS Safety Report 21679253 (Version 2)
Quarter: 2022Q4

REPORT INFORMATION
  Report Type: Report from Study
  Country: IN (occurrence: IN)
  Receive Date: 20221205
  Receipt Date: 20221215
  Transmission Date: 20230112
  Serious: Yes (Other)
  Sender: FDA-Public Use
  Company Number: IN-BRISTOL-MYERS SQUIBB COMPANY-2022-145035

PATIENT
  Age: 49 Year
  Sex: Female

DRUGS (4)
  1. NIVOLUMAB [Suspect]
     Active Substance: NIVOLUMAB
     Indication: Gastric cancer
     Dosage: 2 WEEKLY
     Route: 042
     Dates: start: 20220926
  2. NIVOLUMAB [Suspect]
     Active Substance: NIVOLUMAB
     Dosage: RESTARTED ON AN UNKNOWN DATE
  3. DEXAMETHASONE [Concomitant]
     Active Substance: DEXAMETHASONE
     Route: 048
  4. FLUOROURACIL\LEUCOVORIN CALCIUM\OXALIPLATIN [Concomitant]
     Active Substance: FLUOROURACIL\LEUCOVORIN CALCIUM\OXALIPLATIN
     Route: 042

REACTIONS (1)
  - Device related thrombosis [Recovered/Resolved]

NARRATIVE: CASE EVENT DATE: 20221104
